FAERS Safety Report 5867075-4 (Version None)
Quarter: 2008Q3

REPORT INFORMATION
  Report Type: 
  Country: None (occurrence: None)
  Receive Date: 20080902
  Receipt Date: 20080827
  Transmission Date: 20090109
  Serious: Yes (Other)
  Sender: FDA-Public Use
  Company Number: B0534566A

PATIENT
  Age: 73 Year
  Sex: Male
  Weight: 45 kg

DRUGS (9)
  1. VALTREX [Suspect]
     Indication: HERPES ZOSTER
     Dosage: 500MG PER DAY
     Route: 048
     Dates: start: 20080819, end: 20080821
  2. VALTREX [Suspect]
     Dosage: 500MG PER DAY
     Route: 048
     Dates: start: 20080823, end: 20080824
  3. ALLOPURINOL [Concomitant]
     Dosage: 200MG TWICE PER DAY
     Route: 048
  4. ALFAROL [Concomitant]
     Dosage: .25MG PER DAY
     Route: 048
  5. CYANOCOBALAMIN [Concomitant]
     Indication: NEURALGIA
     Dosage: 1500MG THREE TIMES PER DAY
     Route: 048
  6. PROMAC [Concomitant]
     Indication: ZINC DEFICIENCY
     Dosage: 150MG TWICE PER DAY
     Route: 048
  7. FOLIAMIN [Concomitant]
     Dosage: 10MG TWICE PER DAY
     Route: 048
  8. CALTAN [Concomitant]
     Indication: BLOOD PHOSPHORUS INCREASED
     Dosage: 3.6G THREE TIMES PER DAY
     Route: 048
  9. DIGOSIN [Concomitant]
     Dosage: .125MG TWICE PER DAY
     Route: 048

REACTIONS (3)
  - DIZZINESS [None]
  - DYSARTHRIA [None]
  - VISUAL IMPAIRMENT [None]
